FAERS Safety Report 5422974-2 (Version None)
Quarter: 2007Q3

REPORT INFORMATION
  Report Type: 
  Country: None (occurrence: None)
  Receive Date: 20070820
  Receipt Date: 20070813
  Transmission Date: 20080115
  Serious: Yes (Hospitalization)
  Sender: FDA-Public Use
  Company Number: 2007SP016463

PATIENT
  Age: 65 Year
  Sex: Female
  Weight: 62 kg

DRUGS (10)
  1. TEMODAL [Suspect]
     Indication: GLIOBLASTOMA
     Dosage: 75 MG/M2;QD;PO; 150 MG/M2;QD;PO; 200 MG/M2;QD;PO
     Route: 048
     Dates: start: 20070110, end: 20070220
  2. TEMODAL [Suspect]
     Indication: GLIOBLASTOMA
     Dosage: 75 MG/M2;QD;PO; 150 MG/M2;QD;PO; 200 MG/M2;QD;PO
     Route: 048
     Dates: start: 20070321, end: 20070325
  3. TEMODAL [Suspect]
     Indication: GLIOBLASTOMA
     Dosage: 75 MG/M2;QD;PO; 150 MG/M2;QD;PO; 200 MG/M2;QD;PO
     Route: 048
     Dates: start: 20070418, end: 20070422
  4. TEMODAL [Suspect]
     Indication: GLIOBLASTOMA
     Dosage: 75 MG/M2;QD;PO; 150 MG/M2;QD;PO; 200 MG/M2;QD;PO
     Route: 048
     Dates: start: 20070524, end: 20070528
  5. BAKTAR [Concomitant]
  6. NAUZELIN [Concomitant]
  7. MAGMITT [Concomitant]
  8. PREDONINE [Concomitant]
  9. LANSOPRAZOLE [Concomitant]
  10. PURSENNID [Concomitant]

REACTIONS (4)
  - CARDIAC FAILURE [None]
  - DISEASE PROGRESSION [None]
  - DRUG HYPERSENSITIVITY [None]
  - WHEEZING [None]
